FAERS Safety Report 9296051 (Version 1)
Quarter: 2013Q2

REPORT INFORMATION
  Report Type: Spontaneous
  Country: US (occurrence: US)
  Receive Date: 20130517
  Receipt Date: 20130517
  Transmission Date: 20140414
  Serious: No
  Sender: FDA-Public Use
  Company Number: US-ASTRAZENECA-2012SE77568

PATIENT
  Age: 54 Year
  Sex: Male

DRUGS (3)
  1. CRESTOR [Suspect]
     Indication: BLOOD CHOLESTEROL ABNORMAL
     Route: 048
  2. NIASPAN [Concomitant]
  3. ZETIA [Concomitant]

REACTIONS (5)
  - Erectile dysfunction [Unknown]
  - Intervertebral disc protrusion [Unknown]
  - Migraine [Unknown]
  - Arthritis [Unknown]
  - Type 2 diabetes mellitus [Unknown]
